FAERS Safety Report 5957642-1 (Version None)
Quarter: 2008Q4

REPORT INFORMATION
  Report Type: 
  Country: None (occurrence: None)
  Receive Date: 20081113
  Receipt Date: 20081027
  Transmission Date: 20090506
  Serious: Yes (Hospitalization)
  Sender: FDA-Public Use
  Company Number: 0284

PATIENT
  Age: 51 Year
  Sex: Female

DRUGS (5)
  1. INDOCIN [Suspect]
     Indication: ANKYLOSING SPONDYLITIS
     Dosage: 100 MG, PO
     Route: 048
     Dates: end: 20080923
  2. PROPOXYPHENE HCL AND ACETAMINOPHEN [Concomitant]
  3. OMEPRAZOLE [Concomitant]
  4. INDOMETHACIN [Suspect]
     Indication: ANKYLOSING SPONDYLITIS
     Dosage: 75 MG
     Route: 048
     Dates: end: 20080923
  5. ADALIMUMAB [Suspect]
     Indication: ANKYLOSING SPONDYLITIS
     Dosage: 40 MG, Q2WK
     Route: 058
     Dates: start: 20080630, end: 20080922

REACTIONS (11)
  - ARTHRALGIA [None]
  - ASTHENIA [None]
  - BLOOD ALBUMIN DECREASED [None]
  - DYSPNOEA [None]
  - HAEMOGLOBIN DECREASED [None]
  - OEDEMA PERIPHERAL [None]
  - PERICARDIAL EFFUSION [None]
  - PLEURAL EFFUSION [None]
  - PROTEIN TOTAL DECREASED [None]
  - SYNOVITIS [None]
  - WEIGHT DECREASED [None]
